FAERS Safety Report 8638022 (Version 3)
Quarter: 2013Q1

REPORT INFORMATION
  Report Type: Spontaneous
  Country: DE (occurrence: DE)
  Receive Date: 20120627
  Receipt Date: 20130204
  Transmission Date: 20140127
  Serious: Yes (Hospitalization, Other)
  Sender: FDA-Public Use
  Company Number: DE-PFIZER INC-2012136980

PATIENT
  Age: 56 Year
  Sex: Male

DRUGS (2)
  1. CAVERJECT IMPULSE [Suspect]
     Dosage: 20 MG, UNK
     Dates: start: 2002
  2. CIALIS [Concomitant]
     Dosage: UNK

REACTIONS (12)
  - Urinary retention [Recovered/Resolved]
  - Urethral stenosis [Unknown]
  - Urethrotomy [Unknown]
  - Bladder disorder [Unknown]
  - Penis disorder [Unknown]
  - Bladder diverticulum [Unknown]
  - Venous insufficiency [Unknown]
  - Gastritis erosive [Unknown]
  - Cholecystectomy [Unknown]
  - Gastric ulcer [Unknown]
  - Anorgasmia [Unknown]
  - Erectile dysfunction [Unknown]
